FAERS Safety Report 24326149 (Version 1)
Quarter: 2024Q3

REPORT INFORMATION
  Report Type: Report from Study
  Country: US (occurrence: US)
  Receive Date: 20240917
  Receipt Date: 20240917
  Transmission Date: 20241016
  Serious: Yes (Hospitalization)
  Sender: ACCORD
  Company Number: US-Accord-446294

PATIENT
  Sex: Female
  Weight: 72.03 kg

DRUGS (1)
  1. CLOZAPINE [Suspect]
     Active Substance: CLOZAPINE
     Indication: Schizophrenia
     Dosage: 100MG, HALF TABLET, EVERY MORNING AND 1 TABLET, EVERY EVENING?EVENING
     Route: 048

REACTIONS (1)
  - Mania [Recovering/Resolving]
